FAERS Safety Report 17289987 (Version 1)
Quarter: 2020Q1

REPORT INFORMATION
  Report Type: Spontaneous
  Country: FR (occurrence: FR)
  Receive Date: 20200120
  Receipt Date: 20200120
  Transmission Date: 20200409
  Serious: Yes (Other)
  Sender: FDA-Public Use
  Company Number: FR-BAUSCH-BL-2020-001508

PATIENT
  Age: 84 Year
  Sex: Male

DRUGS (4)
  1. IMNOVID [Suspect]
     Active Substance: POMALIDOMIDE
     Indication: PLASMA CELL MYELOMA
     Route: 048
     Dates: start: 20191014, end: 20191223
  2. IMNOVID [Suspect]
     Active Substance: POMALIDOMIDE
     Route: 048
     Dates: start: 20191224
  3. DEXAMETHASONE. [Suspect]
     Active Substance: DEXAMETHASONE
     Indication: PLASMA CELL MYELOMA
     Route: 065
     Dates: start: 20191014
  4. LMWH [Concomitant]
     Active Substance: UNSPECIFIED INGREDIENT
     Indication: THROMBOSIS PROPHYLAXIS
     Route: 065

REACTIONS (1)
  - Plasma cell myeloma [Unknown]

NARRATIVE: CASE EVENT DATE: 20191118
